FAERS Safety Report 12440599 (Version 6)
Quarter: 2016Q4

REPORT INFORMATION
  Report Type: Report from Study
  Country: JP (occurrence: JP)
  Receive Date: 20160606
  Receipt Date: 20161102
  Transmission Date: 20170207
  Serious: Yes (Hospitalization, Other)
  Sender: FDA-Public Use
  Company Number: JP-BIOGEN-2016BI00242083

PATIENT
  Age: 53 Year
  Sex: Female
  Weight: 52 kg

DRUGS (16)
  1. TRAVELMIN [Concomitant]
     Active Substance: DIMENHYDRINATE
     Indication: DIZZINESS
     Route: 048
     Dates: start: 20150825
  2. MAGNESIUM OXIDE. [Concomitant]
     Active Substance: MAGNESIUM OXIDE
     Indication: CONSTIPATION
     Route: 048
     Dates: start: 20140205, end: 20160428
  3. GABAPEN [Concomitant]
     Active Substance: GABAPENTIN
     Indication: MULTIPLE SCLEROSIS
     Route: 048
     Dates: start: 20150128
  4. TEPRENONE [Concomitant]
     Active Substance: TEPRENONE
     Indication: GASTRITIS PROPHYLAXIS
     Route: 048
     Dates: start: 20140807
  5. FINGOLIMOD HYDROCHLORIDE [Concomitant]
     Active Substance: FINGOLIMOD HYDROCHLORIDE
     Route: 065
     Dates: start: 20120419
  6. BIIB041 [Suspect]
     Active Substance: DALFAMPRIDINE
     Indication: RELAPSING-REMITTING MULTIPLE SCLEROSIS
     Route: 048
     Dates: start: 20131211, end: 20160518
  7. TEGRETOL [Concomitant]
     Active Substance: CARBAMAZEPINE
     Indication: MULTIPLE SCLEROSIS
     Route: 048
     Dates: start: 20111129
  8. MEILAX [Concomitant]
     Active Substance: ETHYL LOFLAZEPATE
     Indication: DEPRESSION
     Route: 048
     Dates: start: 20150501
  9. IMUSERA [Concomitant]
     Active Substance: FINGOLIMOD HYDROCHLORIDE
     Indication: MULTIPLE SCLEROSIS
     Route: 048
     Dates: start: 20120419, end: 20160714
  10. TETRAMIDE [Concomitant]
     Active Substance: MIANSERIN
     Indication: DEPRESSION
     Route: 048
     Dates: start: 20141024
  11. KETOPROFEN. [Concomitant]
     Active Substance: KETOPROFEN
     Indication: INTERVERTEBRAL DISC PROTRUSION
     Route: 061
     Dates: start: 20160204
  12. DEPAKENE [Concomitant]
     Active Substance: VALPROIC ACID
     Indication: MIGRAINE
     Route: 048
     Dates: start: 20141105
  13. MEILAX [Concomitant]
     Active Substance: ETHYL LOFLAZEPATE
     Route: 048
     Dates: start: 20150501
  14. IMIGRAN [Concomitant]
     Active Substance: SUMATRIPTAN SUCCINATE
     Indication: MIGRAINE
     Route: 048
     Dates: start: 20091026
  15. LOXOPROFEN SODIUM HYDRATE [Concomitant]
     Active Substance: LOXOPROFEN SODIUM DIHYDRATE
     Indication: MULTIPLE SCLEROSIS
     Route: 048
     Dates: start: 20140806
  16. MOHRUS [Concomitant]
     Active Substance: KETOPROFEN
     Indication: INTERVERTEBRAL DISC PROTRUSION
     Route: 061

REACTIONS (1)
  - Rectal cancer [Not Recovered/Not Resolved]

NARRATIVE: CASE EVENT DATE: 20160519
